FAERS Safety Report 6383030-2 (Version None)
Quarter: 2009Q3

REPORT INFORMATION
  Report Type: 
  Country: None (occurrence: None)
  Receive Date: 20090924
  Receipt Date: 20090609
  Transmission Date: 20100115
  Serious: No
  Sender: FDA-Public Use
  Company Number: US-CVT-090353

PATIENT
  Age: 80 Year
  Sex: Female

DRUGS (8)
  1. RANEXA               (RANOLAZINE) FILM-COATED [Suspect]
     Indication: ANGINA PECTORIS
     Dosage: 500 MG, BID, ORAL
     Route: 048
     Dates: start: 20090501
  2. HYZAAR [Concomitant]
  3. TOPROL-XL [Concomitant]
  4. DIGOXIN [Concomitant]
  5. NORVASC [Concomitant]
  6. COUMADIN [Concomitant]
  7. ACTOS [Concomitant]
  8. LIPITOR [Concomitant]

REACTIONS (3)
  - ASTHENOPIA [None]
  - DYSPNOEA [None]
  - FATIGUE [None]
